FAERS Safety Report 7481334-3 (Version None)
Quarter: 2011Q2

REPORT INFORMATION
  Report Type: 
  Country: None (occurrence: None)
  Receive Date: 20110516
  Receipt Date: 20110504
  Transmission Date: 20111010
  Serious: Yes (Hospitalization, Other)
  Sender: FDA-Public Use
  Company Number: US-NOVOPROD-327674

PATIENT
  Age: 47 Year
  Sex: Female

DRUGS (3)
  1. VICTOZA [Suspect]
     Indication: PRODUCT USED FOR UNKNOWN INDICATION
     Dosage: UNK
     Route: 058
     Dates: start: 20101213
  2. BUMEX [Suspect]
     Indication: PRODUCT USED FOR UNKNOWN INDICATION
  3. VICTOZA [Suspect]
     Dosage: 1.2 MG, QD
     Route: 058

REACTIONS (3)
  - PANCREATITIS ACUTE [None]
  - UTERINE DILATION AND CURETTAGE [None]
  - URINARY TRACT INFECTION [None]
